FAERS Safety Report 8335701-6 (Version None)
Quarter: 2012Q2

REPORT INFORMATION
  Report Type: 
  Country: None (occurrence: None)
  Receive Date: 20120504
  Receipt Date: 20120425
  Transmission Date: 20120825
  Serious: No
  Sender: FDA-Public Use
  Company Number: US-BIOGENIDEC-2012BI014558

PATIENT
  Sex: Male

DRUGS (3)
  1. TYSABRI [Suspect]
     Indication: MULTIPLE SCLEROSIS
     Route: 042
     Dates: start: 20090226, end: 20090826
  2. TYSABRI [Suspect]
     Route: 042
     Dates: start: 20120402
  3. TYSABRI [Suspect]
     Route: 042
     Dates: start: 20091021, end: 20101230

REACTIONS (1)
  - MULTIPLE SCLEROSIS RELAPSE [None]
